FAERS Safety Report 15619918 (Version 1)
Quarter: 2018Q4

REPORT INFORMATION
  Report Type: Report from Study
  Country: CN (occurrence: CN)
  Receive Date: 20181115
  Receipt Date: 20181115
  Transmission Date: 20190205
  Serious: Yes (Other)
  Sender: FDA-Public Use
  Company Number: CN-ROCHE-2212930

PATIENT

DRUGS (5)
  1. OXALIPLATIN. [Suspect]
     Active Substance: OXALIPLATIN
     Indication: COLORECTAL CANCER METASTATIC
     Dosage: ON DAY 1, ONCE EVERY 3 WEEKS IN SOC PLUS BEV REGIMEN AND ONCE EVERY 2 WEEKS IN MFOLFOX PLUS BEV REGI
     Route: 042
  2. 5-FLUOROURACIL [Suspect]
     Active Substance: FLUOROURACIL
     Dosage: FOR 46 HOURS CONTINUOUSLY
     Route: 042
  3. BEVACIZUMAB. [Suspect]
     Active Substance: BEVACIZUMAB
     Indication: COLORECTAL CANCER METASTATIC
     Dosage: ON DAY 1, ONCE EVERY 3 WEEKS IN SOC PLUS BEV REGIMEN AND ONCE EVERY 2 WEEKS IN MFOLFOX PLUS BEV REGI
     Route: 042
  4. 5-FLUOROURACIL [Suspect]
     Active Substance: FLUOROURACIL
     Indication: COLORECTAL CANCER METASTATIC
     Dosage: ON DAY 1
     Route: 042
  5. TS-1 [Suspect]
     Active Substance: GIMERACIL\OTERACIL\TEGAFUR
     Indication: COLORECTAL CANCER METASTATIC
     Dosage: FROM DAY 1 TO DAY 14 OF 3 WEEKS CYCLE, ACCORDING TO THE BODY SURFACE AREA, THE DAILY TOTAL DOSE OF S
     Route: 048

REACTIONS (10)
  - Stomatitis [Unknown]
  - Leukopenia [Unknown]
  - Anaemia [Unknown]
  - Decreased appetite [Unknown]
  - Hepatic function abnormal [Unknown]
  - Thrombocytopenia [Unknown]
  - Diarrhoea [Unknown]
  - Peripheral sensory neuropathy [Unknown]
  - Nausea [Unknown]
  - Palmar-plantar erythrodysaesthesia syndrome [Unknown]
